FAERS Safety Report 13689279 (Version 1)
Quarter: 2017Q2

REPORT INFORMATION
  Report Type: Spontaneous
  Country: US (occurrence: US)
  Receive Date: 20170626
  Receipt Date: 20170626
  Transmission Date: 20170830
  Serious: No
  Sender: FDA-Public Use
  Company Number: US-MYLANLABS-2016M1025296

PATIENT
  Sex: Female
  Weight: 66.67 kg

DRUGS (2)
  1. CYCLOBENZAPRINE. [Suspect]
     Active Substance: CYCLOBENZAPRINE
     Indication: BLADDER DISORDER
     Dosage: 10 MG, HS
  2. CYCLOBENZAPRINE. [Suspect]
     Active Substance: CYCLOBENZAPRINE
     Indication: OFF LABEL USE
     Dosage: 5 MG, HS

REACTIONS (1)
  - Drug ineffective for unapproved indication [Recovered/Resolved]
